FAERS Safety Report 15044760 (Version 1)
Quarter: 2018Q2

REPORT INFORMATION
  Report Type: Spontaneous
  Country: US (occurrence: US)
  Receive Date: 20180531
  Receipt Date: 20180531
  Transmission Date: 20180711
  Serious: Yes (Disabling, Other)
  Sender: FDA-Public Use
  Company Number: None

PATIENT
  Age: 31 Year
  Sex: Female
  Weight: 71.21 kg

DRUGS (5)
  1. LEVOTHYROXINE. [Concomitant]
     Active Substance: LEVOTHYROXINE
  2. RHODIOLA [Concomitant]
     Active Substance: HERBALS
  3. VITAMIN B12 [Concomitant]
     Active Substance: CYANOCOBALAMIN
  4. MIRENA [Suspect]
     Active Substance: LEVONORGESTREL
     Indication: CONTRACEPTION
     Dosage: ?          OTHER FREQUENCY:EVERY 5 YEARS;?
     Route: 067
     Dates: start: 20121207, end: 20131115
  5. PROBIOTICS [Concomitant]
     Active Substance: PROBIOTICS NOS

REACTIONS (41)
  - Bedridden [None]
  - Dyspnoea [None]
  - Hypoaesthesia [None]
  - Insomnia [None]
  - Urinary tract infection [None]
  - Chest discomfort [None]
  - Feeling abnormal [None]
  - Deafness [None]
  - Palpitations [None]
  - Facial paralysis [None]
  - Panic attack [None]
  - Tremor [None]
  - Fall [None]
  - Eating disorder [None]
  - Depression [None]
  - Amenorrhoea [None]
  - Fatigue [None]
  - Muscle spasms [None]
  - Fungal infection [None]
  - Weight increased [None]
  - Presyncope [None]
  - Dysarthria [None]
  - Suicidal ideation [None]
  - Hypothyroidism [None]
  - Panic reaction [None]
  - Feeling of despair [None]
  - Weight decreased [None]
  - Bacterial vaginosis [None]
  - Emotional disorder [None]
  - Breast pain [None]
  - Hypomenorrhoea [None]
  - Cold sweat [None]
  - Crying [None]
  - Irritability [None]
  - Hot flush [None]
  - Paraesthesia [None]
  - Blindness [None]
  - Menopausal symptoms [None]
  - Night sweats [None]
  - Alopecia [None]
  - Arthralgia [None]

NARRATIVE: CASE EVENT DATE: 20131023
